FAERS Safety Report 6174746-1 (Version None)
Quarter: 2009Q2

REPORT INFORMATION
  Report Type: 
  Country: None (occurrence: None)
  Receive Date: 20090430
  Receipt Date: 20080911
  Transmission Date: 20091009
  Serious: No
  Sender: FDA-Public Use
  Company Number: US-ASTRAZENECA-2008UW18838

PATIENT
  Age: 45 Year
  Sex: Male
  Weight: 86.2 kg

DRUGS (5)
  1. NEXIUM [Suspect]
     Indication: GASTROOESOPHAGEAL REFLUX DISEASE
     Route: 048
     Dates: start: 20030101
  2. LEXAPRO [Concomitant]
  3. CLONOPIN [Concomitant]
  4. PREVACID [Concomitant]
  5. MOBIC [Concomitant]

REACTIONS (3)
  - DIARRHOEA [None]
  - REACTION TO COLOURING [None]
  - URTICARIA [None]
